FAERS Safety Report 19104589 (Version 1)
Quarter: 2021Q2

REPORT INFORMATION
  Report Type: Spontaneous
  Country: GB (occurrence: GB)
  Receive Date: 20210408
  Receipt Date: 20210408
  Transmission Date: 20210717
  Serious: No
  Sender: FDA-Public Use
  Company Number: GB-LUPIN PHARMACEUTICALS INC.-2021-04275

PATIENT
  Age: 53 Year
  Sex: Female

DRUGS (3)
  1. 5?FLUOROURACIL [FLUOROURACIL] [Concomitant]
     Active Substance: FLUOROURACIL
     Indication: NAIL PSORIASIS
     Dosage: UNK
     Route: 061
  2. TAZAROTENE. [Suspect]
     Active Substance: TAZAROTENE
     Indication: NAIL PSORIASIS
     Dosage: UNK
     Route: 065
  3. CALCIPOTRIENE. [Suspect]
     Active Substance: CALCIPOTRIENE
     Indication: NAIL PSORIASIS
     Dosage: UNK
     Route: 065

REACTIONS (1)
  - Drug ineffective [Unknown]
